FAERS Safety Report 5356332-6 (Version None)
Quarter: 2007Q2

REPORT INFORMATION
  Report Type: 
  Country: None (occurrence: None)
  Receive Date: 20070613
  Receipt Date: 20070607
  Transmission Date: 20071010
  Serious: No
  Sender: FDA-Public Use
  Company Number: US-BAXTER-2007BH005109

PATIENT
  Age: 81 Year
  Sex: Male

DRUGS (2)
  1. DOBUTAMINE HYDROCHLORIDE [Suspect]
     Indication: CARDIAC FAILURE CONGESTIVE
     Dosage: DOSE UNIT:UNKNOWN
     Route: 042
     Dates: start: 20070501
  2. DOBUTAMINE HYDROCHLORIDE [Suspect]
     Dosage: DOSE UNIT:UNKNOWN
     Route: 042
     Dates: start: 20070605

REACTIONS (1)
  - ENTEROCOCCAL SEPSIS [None]
